FAERS Safety Report 21311584 (Version 1)
Quarter: 2022Q3

REPORT INFORMATION
  Report Type: Other
  Country: US (occurrence: None)
  Receive Date: 20220909
  Receipt Date: 20220909
  Transmission Date: 20221026
  Serious: Yes (Other)
  Sender: FDA-Public Use
  Company Number: US-ROCHE-3172585

PATIENT
  Sex: Female

DRUGS (13)
  1. HERCEPTIN [Suspect]
     Active Substance: TRASTUZUMAB
     Indication: Breast cancer female
     Route: 041
  2. HERCEPTIN [Suspect]
     Active Substance: TRASTUZUMAB
     Indication: Breast cancer female
  3. DIPHENHYDRAMINE [Concomitant]
     Active Substance: DIPHENHYDRAMINE
     Route: 048
  4. DOCUSATE SODIUM [Concomitant]
     Active Substance: DOCUSATE SODIUM
  5. ERGOCALCIFEROL [Concomitant]
     Active Substance: ERGOCALCIFEROL
     Route: 048
  6. GABAPENTIN [Concomitant]
     Active Substance: GABAPENTIN
     Route: 048
  7. IBUPROFEN [Concomitant]
     Active Substance: IBUPROFEN
     Route: 048
  8. LOPERAMIDE [Concomitant]
     Active Substance: LOPERAMIDE
     Route: 048
  9. NICOTINE POLACRILEX [Concomitant]
     Active Substance: NICOTINE
     Dosage: GUM
  10. ONDANSETRON [Concomitant]
     Active Substance: ONDANSETRON
     Route: 048
  11. OXYCODONE [Concomitant]
     Active Substance: OXYCODONE
     Route: 048
  12. PANTOPRAZOLE [Concomitant]
     Active Substance: PANTOPRAZOLE
     Route: 048
  13. KLOR-CON [Concomitant]
     Active Substance: POTASSIUM CHLORIDE

REACTIONS (11)
  - Pneumonia [Unknown]
  - Cataract nuclear [Unknown]
  - Acute kidney injury [Unknown]
  - Pharyngitis [Unknown]
  - Supraventricular tachycardia [Unknown]
  - Obesity [Unknown]
  - Flank pain [Unknown]
  - Subcutaneous abscess [Unknown]
  - Bacterial vaginosis [Unknown]
  - Urinary tract infection [Unknown]
  - Infection [Unknown]
